FAERS Safety Report 14367080 (Version 2)
Quarter: 2018Q1

REPORT INFORMATION
  Report Type: Spontaneous
  Country: JP (occurrence: JP)
  Receive Date: 20180109
  Receipt Date: 20180125
  Transmission Date: 20180509
  Serious: Yes (Death, Hospitalization)
  Sender: FDA-Public Use
  Company Number: JP-PFIZER INC-2017211583

PATIENT
  Age: 73 Year
  Sex: Male
  Weight: 48 kg

DRUGS (5)
  1. CAMPTO [Suspect]
     Active Substance: IRINOTECAN
     Dosage: 140 MG, 1X/DAY
     Route: 041
     Dates: start: 20170418, end: 20170418
  2. TS-1 [Suspect]
     Active Substance: GIMERACIL\OTERACIL\TEGAFUR
     Dosage: 50 MG, 2X/DAY (2ND CYCLE)
     Route: 048
     Dates: start: 20170418, end: 20170425
  3. TS-1 [Suspect]
     Active Substance: GIMERACIL\OTERACIL\TEGAFUR
     Indication: COLON CANCER
     Dosage: 50 MG, 2X/DAY (100 MG/DAY (DAILY ADMINISTRATION))
     Route: 048
     Dates: start: 20170404, end: 20170411
  4. AVASTIN [Concomitant]
     Active Substance: BEVACIZUMAB
     Indication: COLON CANCER
     Dosage: 300 MG, UNK (300 MG/BODY)
     Route: 041
     Dates: start: 20170404, end: 20170418
  5. CAMPTO [Suspect]
     Active Substance: IRINOTECAN
     Indication: COLON CANCER
     Dosage: 140 MG, 1X/DAY (140 MG/BODY (98 MG/M2))
     Route: 041
     Dates: start: 20170404, end: 20170404

REACTIONS (7)
  - Pharyngitis [Recovered/Resolved]
  - Cough [Recovered/Resolved]
  - Neoplasm progression [Fatal]
  - Back pain [Recovered/Resolved]
  - Interstitial lung disease [Recovered/Resolved]
  - Pyrexia [Recovered/Resolved]
  - Asthma [Recovered/Resolved]

NARRATIVE: CASE EVENT DATE: 20170422
